FAERS Safety Report 17406145 (Version 1)
Quarter: 2020Q1

REPORT INFORMATION
  Report Type: Spontaneous
  Country: US (occurrence: US)
  Receive Date: 20200128
  Receipt Date: 20200128
  Transmission Date: 20200409
  Serious: Yes (Hospitalization)
  Sender: FDA-Public Use
  Company Number: None

PATIENT
  Age: 52 Year
  Sex: Female

DRUGS (12)
  1. SILDENAFIL 20MG TAB [Suspect]
     Active Substance: SILDENAFIL
     Indication: PULMONARY ARTERIAL HYPERTENSION
     Route: 048
     Dates: start: 20170421
  2. SPIRONOLACT [Concomitant]
     Active Substance: SPIRONOLACTONE
  3. GABAPENTIN. [Concomitant]
     Active Substance: GABAPENTIN
  4. ORENITRAM [Concomitant]
     Active Substance: TREPROSTINIL
  5. ALLOPURINOL. [Concomitant]
     Active Substance: ALLOPURINOL
  6. BUMEX [Concomitant]
     Active Substance: BUMETANIDE
  7. LOSARTAN POT [Concomitant]
     Active Substance: LOSARTAN POTASSIUM
  8. BETHANECHOL [Concomitant]
     Active Substance: BETHANECHOL
  9. REMODULIN [Concomitant]
     Active Substance: TREPROSTINIL
  10. LEVOTHYROXIN [Concomitant]
     Active Substance: LEVOTHYROXINE
  11. OPSUMIT [Concomitant]
     Active Substance: MACITENTAN
  12. PANTOPRAZOLE [Concomitant]
     Active Substance: PANTOPRAZOLE

REACTIONS (1)
  - Pulmonary arterial hypertension [None]

NARRATIVE: CASE EVENT DATE: 202001
